FAERS Safety Report 8260862-7 (Version None)
Quarter: 2012Q2

REPORT INFORMATION
  Report Type: 
  Country: None (occurrence: None)
  Receive Date: 20120405
  Receipt Date: 20120402
  Transmission Date: 20120825
  Serious: Yes (Hospitalization, Other)
  Sender: FDA-Public Use
  Company Number: BR-ACCORD-012942

PATIENT
  Age: 48 Year
  Sex: Male
  Weight: 64.5 kg

DRUGS (8)
  1. DEXAMETHASONE [Concomitant]
     Indication: CHEMOTHERAPY
     Route: 042
  2. ONDANSETRON [Concomitant]
     Indication: CHEMOTHERAPY
     Route: 042
  3. OMEPRAZOLE [Concomitant]
  4. METOCLOPRAMIDE [Concomitant]
  5. LOSARTAN POTASSIUM [Concomitant]
  6. IRINOTECAN HCL [Suspect]
     Indication: CHEMOTHERAPY
     Dosage: IRINOTECANO 100MG
     Route: 042
     Dates: start: 20120307
  7. ATROPINE [Concomitant]
     Indication: CHEMOTHERAPY
     Route: 042
  8. MORPHINE [Concomitant]

REACTIONS (3)
  - CHOLINERGIC SYNDROME [None]
  - GASTROINTESTINAL TOXICITY [None]
  - HAEMATOTOXICITY [None]
